FAERS Safety Report 6719543-0 (Version None)
Quarter: 2010Q2

REPORT INFORMATION
  Report Type: 
  Country: None (occurrence: None)
  Receive Date: 20100511
  Receipt Date: 20100427
  Transmission Date: 20101027
  Serious: Yes (Other)
  Sender: FDA-Public Use
  Company Number: DE-ROCHE-701935

PATIENT
  Age: 47 Year
  Sex: Female

DRUGS (3)
  1. HERCEPTIN [Suspect]
     Indication: BREAST CANCER
     Dosage: GIVEN FOR 12 WEEKS
     Route: 065
  2. HERCEPTIN [Suspect]
     Dosage: GIVEN AS MONOTHERAPY
     Route: 065
     Dates: end: 20100401
  3. LAPATINIB [Suspect]
     Indication: BREAST CANCER
     Route: 065

REACTIONS (1)
  - HEPATOTOXICITY [None]
